FAERS Safety Report 9050360 (Version 3)
Quarter: 2013Q1

REPORT INFORMATION
  Report Type: Report from Study
  Country: US (occurrence: US)
  Receive Date: 20130205
  Receipt Date: 20130307
  Transmission Date: 20140127
  Serious: No
  Sender: FDA-Public Use
  Company Number: US-VERTEX PHARMACEUTICALS INC.-2013-001451

PATIENT
  Age: 54 None
  Sex: Female
  Weight: 102 kg

DRUGS (7)
  1. VX-950 (TELAPREVIR) [Suspect]
     Indication: HEPATITIS C
     Dosage: 750 MG, TID EVERY 4 HOURS
     Route: 048
     Dates: start: 20130111, end: 20130129
  2. VX-950 (TELAPREVIR) [Suspect]
     Dosage: 750 MG, TID
     Route: 048
     Dates: start: 20130130
  3. PEGASYS [Suspect]
     Indication: HEPATITIS C
     Dosage: 180 ?G, QW
     Route: 058
     Dates: start: 20130111
  4. RIBAVIRIN [Suspect]
     Indication: HEPATITIS C
     Dosage: 600 MG, BID
     Route: 048
     Dates: start: 20130111
  5. VERAPAMIL [Concomitant]
     Indication: HYPERTENSION
     Dosage: 180 MG, QD
     Route: 048
  6. METFORMIN [Concomitant]
     Indication: DIABETES MELLITUS
     Dosage: 1000 MG, BID
     Route: 048
  7. GLIMEPIRIDE [Concomitant]
     Indication: DIABETES MELLITUS
     Dosage: 8 MG, QD

REACTIONS (16)
  - Inappropriate schedule of drug administration [Recovered/Resolved]
  - Dizziness [Not Recovered/Not Resolved]
  - Blood iron decreased [Not Recovered/Not Resolved]
  - Blood glucose decreased [Not Recovered/Not Resolved]
  - Disturbance in attention [Not Recovered/Not Resolved]
  - Decreased appetite [Recovered/Resolved]
  - Feeling drunk [Recovered/Resolved]
  - Feeling abnormal [Not Recovered/Not Resolved]
  - Injection site rash [Recovered/Resolved]
  - Fatigue [Recovered/Resolved]
  - Rash [Recovered/Resolved]
  - Red blood cell count decreased [Not Recovered/Not Resolved]
  - Anorectal discomfort [Recovered/Resolved]
  - Pruritus [Not Recovered/Not Resolved]
  - Dysgeusia [Not Recovered/Not Resolved]
  - Nausea [Recovered/Resolved]
